FAERS Safety Report 12413346 (Version 2)
Quarter: 2016Q3

REPORT INFORMATION
  Report Type: Spontaneous
  Country: IT (occurrence: IT)
  Receive Date: 20160527
  Receipt Date: 20160803
  Transmission Date: 20161109
  Serious: Yes (Other)
  Sender: FDA-Public Use
  Company Number: IT-SA-2016SA099390

PATIENT
  Age: 76 Year
  Sex: Female

DRUGS (5)
  1. LIBRADIN [Concomitant]
     Active Substance: BARNIDIPINE HYDROCHLORIDE
     Dosage: MODIFIED-RELEASE CAPSULES
  2. BRUFEN [Concomitant]
     Active Substance: IBUPROFEN
     Dosage: 800 MG COATED TABLETS PROLONGED RELEASE
  3. RAMIPRIL/HYDROCHLOROTHIAZIDE [Concomitant]
     Active Substance: HYDROCHLOROTHIAZIDE\RAMIPRIL
     Route: 048
  4. MULTAQ [Suspect]
     Active Substance: DRONEDARONE
     Route: 048
     Dates: start: 20160508, end: 20160516
  5. DIBASE [Concomitant]
     Active Substance: CHOLECALCIFEROL
     Dosage: 300,000 IU / ML SOLUTION?FOR INJECTION

REACTIONS (1)
  - Bradyarrhythmia [Recovered/Resolved]

NARRATIVE: CASE EVENT DATE: 20160516
